FAERS Safety Report 7996279-X (Version None)
Quarter: 2011Q4

REPORT INFORMATION
  Report Type: 
  Country: None (occurrence: None)
  Receive Date: 20111220
  Receipt Date: 20111213
  Transmission Date: 20120403
  Serious: Yes (Life-Threatening, Other)
  Sender: FDA-Public Use
  Company Number: FR-ELI_LILLY_AND_COMPANY-FR201112003663

PATIENT

DRUGS (2)
  1. GEMZAR [Suspect]
     Indication: LUNG NEOPLASM MALIGNANT
     Dosage: 4 MG/KG, ONE DAY A WEEK
     Route: 055
  2. ALBUTEROL SULFATE AUTOHALER [Concomitant]

REACTIONS (2)
  - ACUTE RESPIRATORY FAILURE [None]
  - BRONCHOSPASM [None]
